FAERS Safety Report 6029725-1 (Version None)
Quarter: 2009Q1

REPORT INFORMATION
  Report Type: 
  Country: None (occurrence: None)
  Receive Date: 20090107
  Receipt Date: 20081226
  Transmission Date: 20090719
  Serious: Yes (Hospitalization)
  Sender: FDA-Public Use
  Company Number: JP-AVENTIS-200813131JP

PATIENT
  Age: 85 Year
  Sex: Female
  Weight: 37 kg

DRUGS (4)
  1. LASIX [Suspect]
     Route: 048
     Dates: end: 20051027
  2. DAIOKANZOTO [Suspect]
     Route: 048
     Dates: end: 20051027
  3. NU LOTAN [Concomitant]
     Indication: HYPERTENSION
     Route: 048
  4. DAIKEN CHUTO [Concomitant]
     Route: 048

REACTIONS (2)
  - BRADYCARDIA [None]
  - HYPOKALAEMIA [None]
